FAERS Safety Report 24178944 (Version 1)
Quarter: 2024Q3

REPORT INFORMATION
  Report Type: Spontaneous
  Country: US (occurrence: US)
  Receive Date: 20240806
  Receipt Date: 20240806
  Transmission Date: 20241016
  Serious: Yes (Other)
  Sender: ABBVIE
  Company Number: US-ABBVIE-5864355

PATIENT

DRUGS (1)
  1. ELUXADOLINE [Suspect]
     Active Substance: ELUXADOLINE
     Indication: Product used for unknown indication
     Route: 065

REACTIONS (15)
  - Cerebrovascular accident [Unknown]
  - Seizure [Unknown]
  - Pyrexia [Unknown]
  - Epigastric discomfort [Unknown]
  - Syncope [Unknown]
  - Pneumococcal infection [Unknown]
  - Pneumonia [Unknown]
  - Fall [Unknown]
  - Gastrointestinal infection [Unknown]
  - Bedridden [Recovered/Resolved]
  - Diarrhoea [Unknown]
  - Abdominal distension [Unknown]
  - Pain [Unknown]
  - Fibromyalgia [Unknown]
  - Sleep apnoea syndrome [Unknown]
